FAERS Safety Report 21731669 (Version 2)
Quarter: 2022Q4

REPORT INFORMATION
  Report Type: Spontaneous
  Country: JP (occurrence: JP)
  Receive Date: 20221215
  Receipt Date: 20221225
  Transmission Date: 20230112
  Serious: Yes (Other)
  Sender: FDA-Public Use
  Company Number: JP-JNJFOC-20221218809

PATIENT
  Age: 5 Decade
  Sex: Male

DRUGS (2)
  1. EPOPROSTENOL [Suspect]
     Active Substance: EPOPROSTENOL
     Indication: Pulmonary arterial hypertension
     Dosage: DOSE UNKNOWN
     Route: 041
     Dates: end: 2021
  2. FLOLAN [Suspect]
     Active Substance: EPOPROSTENOL SODIUM
     Indication: Product used for unknown indication
     Dosage: DOSE UNKNOWN
     Route: 041
     Dates: end: 2021

REACTIONS (2)
  - Basedow^s disease [Recovering/Resolving]
  - Endocrine ophthalmopathy [Recovering/Resolving]
